FAERS Safety Report 8461307-4 (Version None)
Quarter: 2012Q2

REPORT INFORMATION
  Report Type: 
  Country: None (occurrence: None)
  Receive Date: 20120323
  Receipt Date: 20111104
  Transmission Date: 20120825
  Serious: Yes (Life-Threatening, Hospitalization, Other)
  Sender: FDA-Public Use
  Company Number: 163-21880-11091498

PATIENT
  Age: 85 Year
  Sex: Male
  Weight: 124.2856 kg

DRUGS (35)
  1. LASIX [Concomitant]
  2. CRESTOR [Concomitant]
  3. COUMADIN [Concomitant]
  4. WARFARIN SODIUM [Concomitant]
  5. SPIRIVA [Concomitant]
  6. LANOXIN [Concomitant]
  7. ROSUVASTATIN [Concomitant]
  8. VITAMIN D [Concomitant]
  9. AMBIEN [Concomitant]
  10. OMEPRAZOLE [Concomitant]
  11. THYROID TAB [Concomitant]
  12. NEBIVOLOL HCL [Concomitant]
  13. LOVENOX [Concomitant]
  14. FLOMAX [Concomitant]
  15. DILTIAZEM [Concomitant]
  16. DEXAMETHASONE [Concomitant]
  17. BACTRIM [Concomitant]
  18. NOREPINEPHRINE BITARTRATE [Concomitant]
  19. PROTONIX [Concomitant]
  20. HYDRALAZINE HCL [Concomitant]
  21. BYSTOLIC [Concomitant]
  22. TIGECYCLINE [Concomitant]
  23. MIRALAX [Concomitant]
  24. DOCUSATE(DOCUSATE) [Concomitant]
  25. ENOXAPARIN SODIUM [Concomitant]
  26. MULTIVITAMIN [Concomitant]
  27. BACTRIM [Concomitant]
  28. THYROID TAB [Concomitant]
  29. REVLIMID [Suspect]
     Indication: MULTIPLE MYELOMA
     Dosage: 10 MG, 1 IN 1 D, PO
     Route: 048
     Dates: start: 20110611
  30. METOPROLOL TARTRATE [Concomitant]
  31. OMEGA-3 FATTY ACID(OMEGA-3 FATTY ACIDS) [Concomitant]
  32. TAMSULOSIN HCL [Concomitant]
  33. AMIODARONE HCL [Concomitant]
  34. FISH OIL(FISH OIL) [Concomitant]
  35. TYGACIL [Concomitant]

REACTIONS (6)
  - SEPSIS [None]
  - RENAL FAILURE ACUTE [None]
  - DEEP VEIN THROMBOSIS [None]
  - BONE MARROW FAILURE [None]
  - ATRIAL FIBRILLATION [None]
  - DIVERTICULAR PERFORATION [None]
